FAERS Safety Report 10385972 (Version 1)
Quarter: 2014Q3

REPORT INFORMATION
  Report Type: Spontaneous
  Country: US (occurrence: US)
  Receive Date: 20140814
  Receipt Date: 20140814
  Transmission Date: 20150326
  Serious: Yes (Hospitalization)
  Sender: FDA-Public Use
  Company Number: US-GILEAD-2014-0111692

PATIENT
  Age: 59 Year
  Sex: Female

DRUGS (16)
  1. TRAMADOL [Concomitant]
     Active Substance: TRAMADOL
  2. XARELTO [Concomitant]
     Active Substance: RIVAROXABAN
  3. HYDROMORPHONE [Concomitant]
     Active Substance: HYDROMORPHONE
  4. VERAPAMIL [Concomitant]
     Active Substance: VERAPAMIL HYDROCHLORIDE
  5. POTASSIUM [Concomitant]
     Active Substance: POTASSIUM
  6. DIAZEPAM. [Concomitant]
     Active Substance: DIAZEPAM
  7. CELEBREX [Concomitant]
     Active Substance: CELECOXIB
  8. OXYCODONE [Concomitant]
     Active Substance: OXYCODONE
  9. FUROSEMIDE. [Concomitant]
     Active Substance: FUROSEMIDE
  10. SILDENAFIL [Concomitant]
     Active Substance: SILDENAFIL
  11. ADVAIR HFA [Concomitant]
     Active Substance: FLUTICASONE PROPIONATE\SALMETEROL XINAFOATE
  12. ESTROGEL [Concomitant]
     Active Substance: ESTRADIOL
  13. LETAIRIS [Suspect]
     Active Substance: AMBRISENTAN
     Indication: PULMONARY ARTERIAL HYPERTENSION
     Dosage: 5 MG, QD
     Route: 065
     Dates: start: 20121107
  14. ATORVASTATIN [Concomitant]
     Active Substance: ATORVASTATIN
  15. FIORICET [Concomitant]
     Active Substance: ACETAMINOPHEN\BUTALBITAL\CAFFEINE
  16. AMITRIPTYLINE [Concomitant]
     Active Substance: AMITRIPTYLINE

REACTIONS (1)
  - Dizziness [Not Recovered/Not Resolved]

NARRATIVE: CASE EVENT DATE: 20140807
